FAERS Safety Report 21005621 (Version 1)
Quarter: 2022Q2

REPORT INFORMATION
  Report Type: Report from Study
  Country: JP (occurrence: JP)
  Receive Date: 20220624
  Receipt Date: 20220624
  Transmission Date: 20220720
  Serious: Yes (Death, Other)
  Sender: FDA-Public Use
  Company Number: JP-PFIZER INC-PV202200006192

PATIENT

DRUGS (2)
  1. METHOTREXATE SODIUM [Suspect]
     Active Substance: METHOTREXATE SODIUM
     Indication: Rheumatoid arthritis
     Dosage: }8 MG/WEEK
  2. ABATACEPT [Suspect]
     Active Substance: ABATACEPT
     Dosage: 10 MG
     Route: 042

REACTIONS (1)
  - Death [Fatal]
